FAERS Safety Report 23232437 (Version 8)
Quarter: 2024Q4

REPORT INFORMATION
  Report Type: Spontaneous
  Country: US (occurrence: US)
  Receive Date: 20231128
  Receipt Date: 20241017
  Transmission Date: 20250115
  Serious: Yes (Hospitalization, Other)
  Sender: ROCHE
  Company Number: US-ROCHE-3463467

PATIENT
  Sex: Male

DRUGS (3)
  1. OCREVUS [Suspect]
     Active Substance: OCRELIZUMAB
     Indication: Primary progressive multiple sclerosis
     Route: 042
     Dates: start: 202204
  2. OCREVUS [Suspect]
     Active Substance: OCRELIZUMAB
     Route: 065
     Dates: start: 202205, end: 20231103
  3. ADDERALL [Concomitant]
     Active Substance: AMPHETAMINE ASPARTATE\AMPHETAMINE SULFATE\DEXTROAMPHETAMINE SACCHARATE\DEXTROAMPHETAMINE SULFATE

REACTIONS (51)
  - Sepsis [Not Recovered/Not Resolved]
  - Colitis [Not Recovered/Not Resolved]
  - Intestinal resection [Not Recovered/Not Resolved]
  - Thrombocytopenia [Not Recovered/Not Resolved]
  - Septic shock [Not Recovered/Not Resolved]
  - Multiple organ dysfunction syndrome [Unknown]
  - Hypoperfusion [Unknown]
  - Immune-mediated enterocolitis [Not Recovered/Not Resolved]
  - Pneumonia [Unknown]
  - Pneumothorax [Unknown]
  - Necrosis [Unknown]
  - Abdominal abscess [Unknown]
  - Extremity necrosis [Unknown]
  - Decubitus ulcer [Unknown]
  - Tendon injury [Unknown]
  - Back injury [Unknown]
  - Post-traumatic stress disorder [Unknown]
  - Depression [Unknown]
  - Weight decreased [Unknown]
  - Asthenia [Unknown]
  - Fatigue [Unknown]
  - Asthenia [Unknown]
  - Vomiting [Unknown]
  - Nausea [Unknown]
  - Chills [Unknown]
  - Abdominal pain [Unknown]
  - Colitis [Unknown]
  - Gastritis [Unknown]
  - Gastroenteritis [Unknown]
  - Hepatitis [Unknown]
  - Sinus tachycardia [Unknown]
  - Leukopenia [Unknown]
  - Lethargy [Unknown]
  - Hyperhidrosis [Unknown]
  - Acute kidney injury [Unknown]
  - Malaise [Unknown]
  - Dyspnoea [Unknown]
  - Colorectal adenoma [Unknown]
  - Intestinal mucosal hypertrophy [Unknown]
  - Constipation [Unknown]
  - Pain [Unknown]
  - Neutropenia [Unknown]
  - COVID-19 [Unknown]
  - Aortic arteriosclerosis [Unknown]
  - Gallbladder enlargement [Unknown]
  - Trigger finger [Unknown]
  - Emphysema [Unknown]
  - Upper-airway cough syndrome [Unknown]
  - Myositis [Unknown]
  - Erectile dysfunction [Unknown]
  - Cerebral disorder [Unknown]

NARRATIVE: CASE EVENT DATE: 20230613
